FAERS Safety Report 7410484-2 (Version None)
Quarter: 2011Q2

REPORT INFORMATION
  Report Type: 
  Country: None (occurrence: None)
  Receive Date: 20110413
  Receipt Date: 20110405
  Transmission Date: 20111010
  Serious: No
  Sender: FDA-Public Use
  Company Number: US-BIOGENIDEC-2010BI036932

PATIENT
  Age: 50 Year
  Sex: Female

DRUGS (5)
  1. COPAXONE [Concomitant]
  2. TYSABRI [Suspect]
     Route: 042
     Dates: start: 20090529, end: 20091112
  3. AVONEX [Concomitant]
     Route: 030
  4. TYSABRI [Suspect]
     Route: 042
     Dates: start: 20101008
  5. TYSABRI [Suspect]
     Indication: MULTIPLE SCLEROSIS
     Route: 042
     Dates: start: 20071120, end: 20090423

REACTIONS (5)
  - INFLUENZA LIKE ILLNESS [None]
  - PAIN [None]
  - FLUSHING [None]
  - MOBILITY DECREASED [None]
  - MULTIPLE SCLEROSIS RELAPSE [None]
